FAERS Safety Report 5886248-8 (Version None)
Quarter: 2008Q3

REPORT INFORMATION
  Report Type: 
  Country: None (occurrence: None)
  Receive Date: 20080912
  Receipt Date: 20080830
  Transmission Date: 20090109
  Serious: Yes (Death, Life-Threatening)
  Sender: FDA-Public Use
  Company Number: 004256

PATIENT
  Age: 52 Year
  Sex: Male

DRUGS (6)
  1. BUSULFEX [Suspect]
     Indication: STEM CELL TRANSPLANT
     Dosage: 30 ML, INTRAVENOUS
     Route: 042
     Dates: start: 20070510, end: 20070513
  2. CYCLOPHOSPHAMIDE [Concomitant]
  3. VALPROATE SODIUM [Concomitant]
  4. FILGRASTIM (FILGRASTIM) [Concomitant]
  5. METHOTREXATE [Concomitant]
  6. TACROLIMUS [Concomitant]

REACTIONS (17)
  - ACUTE GRAFT VERSUS HOST DISEASE [None]
  - ALANINE AMINOTRANSFERASE INCREASED [None]
  - ANAEMIA [None]
  - ANOREXIA [None]
  - ASPARTATE AMINOTRANSFERASE INCREASED [None]
  - BLOOD BILIRUBIN INCREASED [None]
  - BLOOD LACTATE DEHYDROGENASE INCREASED [None]
  - BLOOD SODIUM DECREASED [None]
  - BONE MARROW TRANSPLANT REJECTION [None]
  - CONTINUOUS HAEMODIAFILTRATION [None]
  - CYSTITIS [None]
  - LIVER DISORDER [None]
  - NEUROLOGICAL SYMPTOM [None]
  - PNEUMONIA [None]
  - RENAL DISORDER [None]
  - THROMBOTIC MICROANGIOPATHY [None]
  - WHITE BLOOD CELL COUNT DECREASED [None]
